FAERS Safety Report 11275993 (Version 7)
Quarter: 2016Q2

REPORT INFORMATION
  Report Type: Report from Study
  Country: ES (occurrence: ES)
  Receive Date: 20150716
  Receipt Date: 20160609
  Transmission Date: 20160815
  Serious: Yes (Hospitalization)
  Sender: FDA-Public Use
  Company Number: ES-ROCHE-1604593

PATIENT
  Age: 64 Year
  Sex: Female
  Weight: 45.6 kg

DRUGS (9)
  1. METAMIZOLE [Concomitant]
     Active Substance: METAMIZOLE
     Indication: PAIN
     Route: 042
     Dates: start: 20150703
  2. IBUPROFEN. [Concomitant]
     Active Substance: IBUPROFEN
     Indication: PAIN
     Route: 048
     Dates: start: 20150702
  3. COBIMETINIB [Suspect]
     Active Substance: COBIMETINIB
     Indication: METASTATIC MALIGNANT MELANOMA
     Route: 048
     Dates: start: 20150615, end: 20150623
  4. COBIMETINIB [Suspect]
     Active Substance: COBIMETINIB
     Route: 048
     Dates: start: 20150720, end: 20160511
  5. VEMURAFENIB [Suspect]
     Active Substance: VEMURAFENIB
     Indication: METASTATIC MALIGNANT MELANOMA
     Route: 048
     Dates: start: 20150522, end: 20150604
  6. VEMURAFENIB [Suspect]
     Active Substance: VEMURAFENIB
     Route: 048
     Dates: start: 20150615, end: 20150702
  7. VEMURAFENIB [Suspect]
     Active Substance: VEMURAFENIB
     Route: 048
     Dates: start: 20150720
  8. IBUPROFEN. [Concomitant]
     Active Substance: IBUPROFEN
     Indication: PYREXIA
  9. COBIMETINIB [Suspect]
     Active Substance: COBIMETINIB
     Route: 048
     Dates: start: 20150624, end: 20150702

REACTIONS (16)
  - Pyrexia [Recovered/Resolved]
  - Arthritis [Recovered/Resolved]
  - Photosensitivity reaction [Recovered/Resolved]
  - Oedema peripheral [Recovered/Resolved]
  - Vasculitis [Recovered/Resolved]
  - Vitreous detachment [Recovered/Resolved]
  - Alopecia [Not Recovered/Not Resolved]
  - Disease progression [Unknown]
  - Asthenia [Not Recovered/Not Resolved]
  - Macular oedema [Recovered/Resolved]
  - Retinal detachment [Recovered/Resolved]
  - Abdominal pain upper [Recovered/Resolved]
  - Cholecystitis [Recovered/Resolved]
  - Vomiting [Recovered/Resolved]
  - Palmar-plantar erythrodysaesthesia syndrome [Not Recovered/Not Resolved]
  - Arthralgia [Not Recovered/Not Resolved]

NARRATIVE: CASE EVENT DATE: 20150620
